FAERS Safety Report 7500054-X (Version None)
Quarter: 2011Q2

REPORT INFORMATION
  Report Type: 
  Country: None (occurrence: None)
  Receive Date: 20110524
  Receipt Date: 20110321
  Transmission Date: 20111010
  Serious: No
  Sender: FDA-Public Use
  Company Number: US-NOVEN-11US002054

PATIENT
  Sex: Male
  Weight: 38.549 kg

DRUGS (8)
  1. SERTRALINE HYDROCHLORIDE [Concomitant]
     Dosage: 150 UNK, UNKNOWN
     Route: 048
     Dates: start: 20110301, end: 20110301
  2. SERTRALINE HYDROCHLORIDE [Concomitant]
     Indication: PRODUCT USED FOR UNKNOWN INDICATION
     Dosage: 200 UNK, UNKNOWN
     Route: 048
     Dates: start: 20110301, end: 20110301
  3. SERTRALINE HYDROCHLORIDE [Concomitant]
     Dosage: 100 UNK, UNKNOWN
     Route: 048
     Dates: start: 20110301, end: 20110401
  4. DAYTRANA [Suspect]
     Indication: ATTENTION DEFICIT/HYPERACTIVITY DISORDER
     Dosage: 10 MG, UNKNOWN
     Route: 062
     Dates: start: 20110316
  5. ZYRTEC [Concomitant]
     Indication: PRODUCT USED FOR UNKNOWN INDICATION
     Dosage: UNK
     Route: 048
  6. DAYTRANA [Suspect]
     Dosage: 10 MG, UNKNOWN
     Route: 062
     Dates: start: 20110321
  7. SINGULAIR [Concomitant]
     Indication: PRODUCT USED FOR UNKNOWN INDICATION
     Route: 048
  8. FLUVOXAMINE MALEATE [Concomitant]
     Indication: PRODUCT USED FOR UNKNOWN INDICATION
     Dosage: 25 MG, QD
     Route: 048

REACTIONS (3)
  - PRODUCT QUALITY ISSUE [None]
  - DRUG ADMINISTRATION ERROR [None]
  - NO ADVERSE EVENT [None]
